FAERS Safety Report 24850533 (Version 1)
Quarter: 2025Q1

REPORT INFORMATION
  Report Type: Spontaneous
  Country: US (occurrence: US)
  Receive Date: 20250116
  Receipt Date: 20250116
  Transmission Date: 20250408
  Serious: No
  Sender: SK LIFE SCIENCE
  Company Number: US-SK LIFE SCIENCE, INC-SKPVG-2024-000139

PATIENT

DRUGS (7)
  1. XCOPRI [Suspect]
     Active Substance: CENOBAMATE
     Indication: Seizure
     Route: 048
  2. XCOPRI [Suspect]
     Active Substance: CENOBAMATE
     Dosage: 200 MILLIGRAM, ONCE A DAY, AT NIGHTTIME
     Route: 048
     Dates: end: 20240130
  3. XCOPRI [Suspect]
     Active Substance: CENOBAMATE
     Dosage: 200 MG, ONCE A NIGHT AT 9:00PM
     Route: 048
     Dates: end: 20240213
  4. XCOPRI [Suspect]
     Active Substance: CENOBAMATE
     Route: 048
  5. ONFI [Suspect]
     Active Substance: CLOBAZAM
     Indication: Seizure
     Route: 065
     Dates: end: 202402
  6. BRIVIACT [Concomitant]
     Active Substance: BRIVARACETAM
     Indication: Product used for unknown indication
     Dosage: 100MG, TWICE A DAY
     Route: 065
  7. RISPERDAL [Concomitant]
     Active Substance: RISPERIDONE
     Indication: Product used for unknown indication
     Route: 065

REACTIONS (9)
  - Product use issue [Recovered/Resolved]
  - Product use issue [Recovered/Resolved]
  - Drooling [Recovered/Resolved]
  - Seizure [Recovered/Resolved]
  - Fall [Recovered/Resolved]
  - Feeling drunk [Recovered/Resolved]
  - Fatigue [Recovered/Resolved]
  - Somnolence [Recovered/Resolved]
  - Dysarthria [Recovered/Resolved]

NARRATIVE: CASE EVENT DATE: 20240101
